FAERS Safety Report 22974356 (Version 2)
Quarter: 2024Q3

REPORT INFORMATION
  Report Type: Report from Study
  Country: US (occurrence: US)
  Receive Date: 20230923
  Receipt Date: 20240911
  Transmission Date: 20241016
  Serious: Yes (Hospitalization, Other)
  Sender: NOVARTIS
  Company Number: US-002147023-NVSC2023US204319

PATIENT
  Sex: Male

DRUGS (2)
  1. ENTRESTO [Suspect]
     Active Substance: SACUBITRIL\VALSARTAN
     Indication: Product used for unknown indication
     Dosage: UNK, BID (97/103 MG, 1 TABLET)
     Route: 048
     Dates: start: 20231121
  2. ENTRESTO [Suspect]
     Active Substance: SACUBITRIL\VALSARTAN
     Dosage: UNK, BID (24/26MG, 1 TABLET)
     Route: 048

REACTIONS (4)
  - Cardiac failure [Unknown]
  - Dyspnoea [Unknown]
  - Syncope [Unknown]
  - Hypotension [Unknown]
